FAERS Safety Report 16032982 (Version 2)
Quarter: 2019Q1

REPORT INFORMATION
  Report Type: Spontaneous
  Country: BR (occurrence: BR)
  Receive Date: 20190305
  Receipt Date: 20190320
  Transmission Date: 20190418
  Serious: Yes (Life-Threatening, Other)
  Sender: FDA-Public Use
  Company Number: BR-ROCHE-2276643

PATIENT
  Age: 72 Year
  Sex: Male
  Weight: 79 kg

DRUGS (8)
  1. PANTOPRAZOL [Concomitant]
     Active Substance: PANTOPRAZOLE SODIUM
     Route: 065
  2. ACTILYSE [Suspect]
     Active Substance: ALTEPLASE
     Indication: ISCHAEMIC STROKE
     Dosage: IN BOLUS IN 2 HOURS
     Route: 042
     Dates: start: 20190225, end: 20190225
  3. UNOPROST (BRAZIL) [Concomitant]
     Route: 065
  4. HIDANTAL [Concomitant]
     Active Substance: PHENYTOIN SODIUM
  5. TAZOCIN [Concomitant]
     Active Substance: PIPERACILLIN SODIUM\TAZOBACTAM SODIUM
  6. TARGOCID [Concomitant]
     Active Substance: TEICOPLANIN
  7. FINASTERIDA MYLAN [Concomitant]
  8. LUFTAL [Concomitant]
     Active Substance: DIMETHICONE

REACTIONS (3)
  - Pulmonary sepsis [Unknown]
  - Depressed level of consciousness [Unknown]
  - Haemorrhage [Unknown]

NARRATIVE: CASE EVENT DATE: 20190225
